FAERS Safety Report 6629012-4 (Version None)
Quarter: 2010Q1

REPORT INFORMATION
  Report Type: 
  Country: None (occurrence: None)
  Receive Date: 20100311
  Receipt Date: 20090811
  Transmission Date: 20100710
  Serious: No
  Sender: FDA-Public Use
  Company Number: US-BIOGENIDEC-2009BI025141

PATIENT
  Sex: Female

DRUGS (2)
  1. AVONEX [Suspect]
     Indication: MULTIPLE SCLEROSIS
     Route: 030
     Dates: start: 19990101, end: 20030101
  2. AVONEX [Suspect]
     Route: 030
     Dates: start: 20030101

REACTIONS (7)
  - CYST [None]
  - DRUG HYPERSENSITIVITY [None]
  - OSTEOPENIA [None]
  - OSTEOPOROSIS [None]
  - SINUSITIS [None]
  - SPINAL FRACTURE [None]
  - TOOTH LOSS [None]
